FAERS Safety Report 4276142-0 (Version None)
Quarter: 2004Q1

REPORT INFORMATION
  Report Type: 
  Country: None (occurrence: None)
  Receive Date: 20040121
  Receipt Date: 20031105
  Transmission Date: 20041129
  Serious: No
  Sender: FDA-Public Use
  Company Number: US-GLAXOSMITHKLINE-A0433112A

PATIENT
  Age: 34 Year
  Sex: Female

DRUGS (2)
  1. VALTREX [Suspect]
     Dosage: 500MG TWICE PER DAY
     Route: 048
     Dates: start: 20031103
  2. ORAL CONTRACEPTIVES [Concomitant]

REACTIONS (4)
  - CHEILITIS [None]
  - DRUG INEFFECTIVE [None]
  - FEELING HOT [None]
  - PRURITUS [None]
